FAERS Safety Report 24092735 (Version 2)
Quarter: 2024Q4

REPORT INFORMATION
  Report Type: Spontaneous
  Country: CA (occurrence: CA)
  Receive Date: 20240715
  Receipt Date: 20241220
  Transmission Date: 20250115
  Serious: Yes (Life-Threatening, Other)
  Sender: FERRING
  Company Number: CA-FERRINGPH-2024FE03760

PATIENT

DRUGS (7)
  1. DDAVP [Suspect]
     Active Substance: DESMOPRESSIN ACETATE
     Indication: Product used for unknown indication
     Dosage: 12.5 UG
     Route: 042
     Dates: start: 20231124, end: 20231124
  2. APROTININ\CALCIUM CHLORIDE\FIBRINOGEN HUMAN\THROMBIN [Suspect]
     Active Substance: APROTININ\CALCIUM CHLORIDE\FIBRINOGEN HUMAN\THROMBIN
     Indication: Surgery
     Dosage: 500 INTERNATIONAL UNIT (FROZEN) 10 ML
     Route: 065
     Dates: start: 20241124, end: 20241124
  3. KETAMINE [Suspect]
     Active Substance: KETAMINE
     Indication: Product used for unknown indication
     Dosage: 0.3 MG/KG, EVERY HOUR
     Route: 065
     Dates: start: 20231124
  4. PROPOFOL [Suspect]
     Active Substance: PROPOFOL
     Indication: Product used for unknown indication
     Dosage: 250 MG/KG, EVERY MINUTE
     Route: 065
     Dates: start: 20231124
  5. PROPOFOL [Suspect]
     Active Substance: PROPOFOL
     Dosage: 175 MG/KG, EVERY MINUTE AT 11:00 AM
     Route: 065
  6. SUFENTANIL CITRATE [Suspect]
     Active Substance: SUFENTANIL CITRATE
     Indication: Product used for unknown indication
     Dosage: UNK
     Route: 065
     Dates: start: 20231124
  7. TRANEXAMIC ACID [Suspect]
     Active Substance: TRANEXAMIC ACID
     Indication: Product used for unknown indication
     Dosage: UNK
     Route: 065
     Dates: start: 20231124

REACTIONS (4)
  - Haemothorax [Unknown]
  - Shock [Recovered/Resolved]
  - Shock haemorrhagic [Unknown]
  - Anaphylactic reaction [Unknown]

NARRATIVE: CASE EVENT DATE: 20231124
